FAERS Safety Report 25605184 (Version 1)
Quarter: 2025Q3

REPORT INFORMATION
  Report Type: Spontaneous
  Country: US (occurrence: None)
  Receive Date: 20250724
  Receipt Date: 20250724
  Transmission Date: 20251020
  Serious: Yes (Hospitalization)
  Sender: FDA-CTU
  Company Number: None

PATIENT
  Sex: Male

DRUGS (1)
  1. VALTOCO [Suspect]
     Active Substance: DIAZEPAM
     Indication: Seizure
     Route: 045
     Dates: start: 20230407

REACTIONS (2)
  - Seizure [None]
  - Therapy interrupted [None]
